FAERS Safety Report 8869486 (Version 1)
Quarter: 2012Q4

REPORT INFORMATION
  Report Type: 
  Country: US (occurrence: US)
  Receive Date: 20121028
  Receipt Date: 20121028
  Transmission Date: 20130627
  Serious: Yes (Hospitalization, Disabling, Other)
  Sender: FDA-Public Use
  Company Number: US-009507513-1205USA04406

PATIENT

DRUGS (12)
  1. FOSAMAX [Suspect]
     Indication: OSTEOPENIA
     Dosage: 35 mg, UNK
     Route: 048
     Dates: start: 200111, end: 200704
  2. FOSAMAX [Suspect]
     Dosage: 70 mg, qw
     Route: 048
     Dates: start: 200705, end: 200806
  3. FOSAMAX [Suspect]
     Indication: OSTEOPENIA
     Dosage: 70 mg, UNK
     Route: 048
     Dates: start: 200807, end: 201005
  4. ASCORBIC ACID [Concomitant]
     Dosage: 1000 mg, qd
     Dates: start: 2000, end: 2007
  5. GARLIC [Concomitant]
     Dosage: 300 mg, qd
     Dates: start: 2000, end: 2007
  6. GLUCOSAMINE [Concomitant]
     Dosage: 1000 mg, qd
     Dates: start: 2000, end: 2007
  7. OMEGA-3 [Concomitant]
     Dosage: 400 mg, qd
     Dates: start: 2000, end: 2007
  8. VITAMINS (UNSPECIFIED) [Concomitant]
     Dosage: 1 DF, qd
     Dates: start: 2000
  9. CALCIUM (UNSPECIFIED) [Concomitant]
     Indication: OSTEOPENIA
     Dosage: 2000 mg, qd
     Dates: start: 2000
  10. ZYRTEC [Concomitant]
     Indication: HYPERSENSITIVITY
     Dosage: UNK
     Dates: start: 2005, end: 2007
  11. ALENDRONATE TEVA [Suspect]
     Dosage: 70 mg, UNK
  12. ALENDRONATE SODIUM [Suspect]
     Dosage: 70 mg, UNK

REACTIONS (60)
  - Femur fracture [Not Recovered/Not Resolved]
  - Osteoporosis [Not Recovered/Not Resolved]
  - Stress fracture [Not Recovered/Not Resolved]
  - Femur fracture [Not Recovered/Not Resolved]
  - Low turnover osteopathy [Not Recovered/Not Resolved]
  - Spinal fusion surgery [Unknown]
  - Rotator cuff repair [Unknown]
  - Femur fracture [Unknown]
  - Intramedullary rod insertion [Unknown]
  - Umbilical hernia repair [Unknown]
  - Appendicitis perforated [Unknown]
  - Abscess drainage [Unknown]
  - Abscess [Unknown]
  - Appendicectomy [Unknown]
  - Intramedullary rod insertion [Unknown]
  - Femur fracture [Unknown]
  - Toothache [Unknown]
  - Tooth extraction [Unknown]
  - Endodontic procedure [Unknown]
  - Foot fracture [Unknown]
  - Adverse event [Unknown]
  - Hypothyroidism [Unknown]
  - Hypoparathyroidism [Unknown]
  - Neck injury [Unknown]
  - Umbilical hernia, obstructive [Unknown]
  - Rotator cuff syndrome [Unknown]
  - Fall [Unknown]
  - Incisional drainage [Unknown]
  - Ecchymosis [Unknown]
  - Blood glucose abnormal [Unknown]
  - Osteoporosis [Unknown]
  - Fall [Unknown]
  - Haematemesis [Unknown]
  - Chronic sinusitis [Unknown]
  - Diverticulum intestinal [Unknown]
  - Oropharyngeal pain [Unknown]
  - Chills [Unknown]
  - Exostosis [Unknown]
  - Uterine disorder [Unknown]
  - Vaginal discharge [Unknown]
  - Spinal osteoarthritis [Unknown]
  - Cervical myelopathy [Unknown]
  - Vocal cord disorder [Unknown]
  - Stress urinary incontinence [Unknown]
  - Osteoarthritis [Unknown]
  - Adverse event [Unknown]
  - Spinal osteoarthritis [Unknown]
  - Osteoarthritis [Unknown]
  - Tendonitis [Unknown]
  - Vulvovaginal pruritus [Unknown]
  - Nocturia [Unknown]
  - Incontinence [Unknown]
  - Pyrexia [Unknown]
  - Asthenia [Unknown]
  - Gastrooesophageal reflux disease [Unknown]
  - Arthralgia [Unknown]
  - Musculoskeletal chest pain [Unknown]
  - Rash [Recovering/Resolving]
  - Nausea [Recovered/Resolved]
  - Drug hypersensitivity [Unknown]
